FAERS Safety Report 13727749 (Version 2)
Quarter: 2017Q4

REPORT INFORMATION
  Report Type: Report from Study
  Country: DE (occurrence: DE)
  Receive Date: 20170707
  Receipt Date: 20171115
  Transmission Date: 20180320
  Serious: No
  Sender: FDA-Public Use
  Company Number: DE-SUN PHARMACEUTICAL INDUSTRIES LTD-2017R1-144797

PATIENT

DRUGS (4)
  1. ADRENALINE [Suspect]
     Active Substance: EPINEPHRINE
     Indication: NERVE BLOCK
     Dosage: 5-10 MUG.KG-1
     Route: 065
     Dates: start: 2015
  2. DEXDOR [Suspect]
     Active Substance: DEXMEDETOMIDINE HYDROCHLORIDE
     Indication: ANAESTHESIA
     Dosage: CONTINUOUS INFUSION OF 1 MUG.KG-1.H-1.
     Route: 065
  3. DEXDOR [Suspect]
     Active Substance: DEXMEDETOMIDINE HYDROCHLORIDE
     Indication: SEDATION
     Dosage: TOTAL BOLUS INFUSION OF 0.7-1.1 MUG.KG-1
     Route: 065
     Dates: start: 2015
  4. BUPIVACAINE. [Suspect]
     Active Substance: BUPIVACAINE
     Indication: PRODUCT USED FOR UNKNOWN INDICATION
     Dosage: 2.5 MG.KG-1
     Route: 065
     Dates: start: 2015

REACTIONS (1)
  - Unevaluable event [Unknown]
